FAERS Safety Report 19825053 (Version 1)
Quarter: 2021Q3

REPORT INFORMATION
  Report Type: Spontaneous
  Country: US (occurrence: US)
  Receive Date: 20210910
  Receipt Date: 20210910
  Transmission Date: 20211014
  Serious: No
  Sender: FDA-Public Use
  Company Number: None

PATIENT
  Age: 26 Year
  Sex: Male

DRUGS (1)
  1. DUPIXENT [Suspect]
     Active Substance: DUPILUMAB
     Indication: DERMATITIS ATOPIC
     Route: 058
     Dates: start: 20210908, end: 20210908

REACTIONS (3)
  - Product leakage [None]
  - Wrong technique in device usage process [None]
  - Incorrect dose administered [None]

NARRATIVE: CASE EVENT DATE: 20210908
